FAERS Safety Report 9236130 (Version 1)
Quarter: 2013Q2

REPORT INFORMATION
  Report Type: Spontaneous
  Country: US (occurrence: US)
  Receive Date: 20130417
  Receipt Date: 20130417
  Transmission Date: 20140414
  Serious: No
  Sender: FDA-Public Use
  Company Number: US-BAYER-2013-044514

PATIENT
  Age: 36 Year
  Sex: Male

DRUGS (3)
  1. STAXYN (FDT/ODT) [Suspect]
     Indication: BLOOD TESTOSTERONE INCREASED
     Dosage: UNK UNK, QD
     Route: 048
     Dates: start: 20130401, end: 20130401
  2. STAXYN (FDT/ODT) [Suspect]
     Indication: BLOOD TESTOSTERONE INCREASED
     Dosage: UNK, QD
     Route: 048
     Dates: start: 20130402
  3. ANDROGEL [Concomitant]

REACTIONS (2)
  - Drug ineffective [None]
  - Therapeutic response delayed [None]
